FAERS Safety Report 16646771 (Version 1)
Quarter: 2019Q3

REPORT INFORMATION
  Report Type: Spontaneous
  Country: US (occurrence: US)
  Receive Date: 20190615
  Receipt Date: 20190615
  Transmission Date: 20191004
  Serious: Yes (Hospitalization)
  Sender: FDA-Public Use
  Company Number: None

PATIENT
  Age: 8 Year
  Sex: Male
  Weight: 55.1 kg

DRUGS (4)
  1. DOXORUBICIN HYDROCHLORIDE. [Suspect]
     Active Substance: DOXORUBICIN HYDROCHLORIDE
     Dosage: ?          OTHER DOSE:880 M;?
     Dates: end: 20190605
  2. ZINECARD [Suspect]
     Active Substance: DEXRAZOXANE HYDROCHLORIDE
     Dosage: ?          OTHER DOSE:88 M;?
     Dates: end: 20190605
  3. CISPLATIN. [Suspect]
     Active Substance: CISPLATIN
     Dosage: ?          OTHER DOSE:117 M;?
     Dates: end: 20190604
  4. NEXAVAR [Suspect]
     Active Substance: SORAFENIB
     Dosage: ?          OTHER DOSE:800 M;?
     Dates: end: 20190607

REACTIONS (8)
  - General physical health deterioration [None]
  - Encephalopathy [None]
  - Tumour lysis syndrome [None]
  - Acute kidney injury [None]
  - Pleural effusion [None]
  - Acute hepatic failure [None]
  - Dyspnoea [None]
  - Dialysis [None]

NARRATIVE: CASE EVENT DATE: 20190604
